FAERS Safety Report 12337402 (Version 1)
Quarter: 2016Q2

REPORT INFORMATION
  Report Type: Spontaneous
  Country: US (occurrence: None)
  Receive Date: 20160504
  Receipt Date: 20160504
  Transmission Date: 20160815
  Serious: Yes (Hospitalization, Other)
  Sender: FDA-Public Use
  Company Number: None

PATIENT
  Age: 68 Year
  Sex: Male
  Weight: 117.03 kg

DRUGS (1)
  1. SOTALOL. [Suspect]
     Active Substance: SOTALOL
     Indication: ARRHYTHMIA
     Route: 048
     Dates: start: 20160204, end: 20160210

REACTIONS (3)
  - Drug ineffective [None]
  - Product quality issue [None]
  - Arrhythmia [None]

NARRATIVE: CASE EVENT DATE: 20160204
